FAERS Safety Report 12176957 (Version 4)
Quarter: 2016Q1

REPORT INFORMATION
  Report Type: Spontaneous
  Country: CA (occurrence: CA)
  Receive Date: 20160314
  Receipt Date: 20160323
  Transmission Date: 20160526
  Serious: Yes (Other)
  Sender: FDA-Public Use
  Company Number: CA-TEVA-620560USA

PATIENT
  Age: 1 Month
  Weight: 5 kg

DRUGS (1)
  1. TEVA-RANITIDINE SOLUTION 15MG/ML [Suspect]
     Active Substance: RANITIDINE HYDROCHLORIDE
     Indication: GASTROOESOPHAGEAL REFLUX DISEASE
     Dosage: 300 MG PER DAY (60MG/KG/DAY), THEN 150MG PER DAY (30MG/KG)
     Dates: start: 20151001, end: 20151015

REACTIONS (3)
  - Drug ineffective [Unknown]
  - Prescribed overdose [Unknown]
  - Faeces discoloured [Unknown]

NARRATIVE: CASE EVENT DATE: 201510
